FAERS Safety Report 17266863 (Version 1)
Quarter: 2019Q4

REPORT INFORMATION
  Report Type: Spontaneous
  Country: US (occurrence: US)
  Receive Date: 20191219
  Receipt Date: 20191219
  Transmission Date: 20200122
  Serious: No
  Sender: FDA-Public Use
  Company Number: None

PATIENT
  Age: 78 Year
  Sex: Male

DRUGS (11)
  1. SERTRALINE [Concomitant]
     Active Substance: SERTRALINE HYDROCHLORIDE
  2. EXELON [Concomitant]
     Active Substance: RIVASTIGMINE TARTRATE
  3. RESTASIS EMU [Concomitant]
  4. ORALAIR [Suspect]
     Active Substance: ANTHOXANTHUM ODORATUM POLLEN\DACTYLIS GLOMERATA POLLEN\LOLIUM PERENNE POLLEN\PHLEUM PRATENSE POLLEN\POA PRATENSIS POLLEN
     Indication: SEASONAL ALLERGY
     Dosage: 300 IR SL TAB ONE TABLET DAILY ORALLY
     Route: 048
     Dates: start: 20190429
  5. CYCLOSPORINE. [Concomitant]
     Active Substance: CYCLOSPORINE
  6. BUPROPION. [Concomitant]
     Active Substance: BUPROPION
  7. ATROVASTATIN [Concomitant]
     Active Substance: ATORVASTATIN CALCIUM
  8. TRAVATAN Z DRO [Concomitant]
  9. CYCLOSPORINE. [Concomitant]
     Active Substance: CYCLOSPORINE
  10. DOXYCYCL HYC [Concomitant]
  11. BENZONATATE. [Concomitant]
     Active Substance: BENZONATATE

REACTIONS (1)
  - Sinusitis [None]

NARRATIVE: CASE EVENT DATE: 20191219
